FAERS Safety Report 7395752-5 (Version None)
Quarter: 2011Q2

REPORT INFORMATION
  Report Type: 
  Country: None (occurrence: None)
  Receive Date: 20110405
  Receipt Date: 20091214
  Transmission Date: 20111010
  Serious: Yes (Other)
  Sender: FDA-Public Use
  Company Number: PHHY2009DE67806

PATIENT
  Sex: Female

DRUGS (2)
  1. EXTAVIA [Suspect]
     Indication: MULTIPLE SCLEROSIS
     Dosage: 250 UG, QOD
     Dates: start: 20091118
  2. EXTAVIA [Suspect]
     Dosage: 0.75 ML, UNK

REACTIONS (9)
  - CYSTITIS [None]
  - VISUAL IMPAIRMENT [None]
  - TRIGEMINAL NEURALGIA [None]
  - BEDRIDDEN [None]
  - DECUBITUS ULCER [None]
  - ERYTHEMA [None]
  - PYREXIA [None]
  - MALAISE [None]
  - MULTIPLE SCLEROSIS RELAPSE [None]
